FAERS Safety Report 21640213 (Version 1)
Quarter: 2022Q4

REPORT INFORMATION
  Report Type: Spontaneous
  Country: AR (occurrence: AR)
  Receive Date: 20221124
  Receipt Date: 20221124
  Transmission Date: 20230113
  Serious: Yes (Life-Threatening, Hospitalization)
  Sender: FDA-Public Use
  Company Number: AR-002147023-NVSC2022AR250490

PATIENT
  Age: 50 Year
  Sex: Female

DRUGS (7)
  1. TASIGNA [Suspect]
     Active Substance: NILOTINIB
     Indication: Chronic myeloid leukaemia
     Dosage: 300 MG, Q12H (2 X 150 MG (600 MG).
     Route: 065
     Dates: start: 202109
  2. TASIGNA [Suspect]
     Active Substance: NILOTINIB
     Dosage: 150 MG Q12H (300 QD)
     Route: 065
  3. TASIGNA [Suspect]
     Active Substance: NILOTINIB
     Dosage: 300 MG, QD
     Route: 065
  4. TASIGNA [Suspect]
     Active Substance: NILOTINIB
     Dosage: 450 MG, QOD
     Route: 065
  5. TASIGNA [Suspect]
     Active Substance: NILOTINIB
     Dosage: 300 MG, BID (2 OF 150 MG, AT NIGHT AND IN THE AFTERNOON, 11SEP 2021 OR 12 SEP 2021)
     Route: 065
     Dates: start: 202109
  6. TASIGNA [Suspect]
     Active Substance: NILOTINIB
     Dosage: 150 MG, BID (IN THE MORNING AND AT NIGHT)
     Route: 065
  7. TASIGNA [Suspect]
     Active Substance: NILOTINIB
     Dosage: 150 MG (EVERY OTHER DAY)
     Route: 065

REACTIONS (34)
  - Night blindness [Not Recovered/Not Resolved]
  - Blindness [Not Recovered/Not Resolved]
  - Visual impairment [Unknown]
  - Vitreous haemorrhage [Recovering/Resolving]
  - Galactorrhoea [Unknown]
  - Uterine cervical pain [Unknown]
  - Extrasystoles [Unknown]
  - Dizziness [Unknown]
  - Chest pain [Unknown]
  - Sinus arrhythmia [Unknown]
  - Tachycardia [Unknown]
  - Syncope [Unknown]
  - Dyspnoea [Unknown]
  - Eye pain [Not Recovered/Not Resolved]
  - Keratitis [Unknown]
  - Polyuria [Unknown]
  - Drug hypersensitivity [Unknown]
  - Dry eye [Unknown]
  - Intermittent claudication [Unknown]
  - Platelet count decreased [Unknown]
  - Oral candidiasis [Recovering/Resolving]
  - Coating in mouth [Unknown]
  - Gingivitis [Not Recovered/Not Resolved]
  - Tongue exfoliation [Unknown]
  - Aptyalism [Unknown]
  - Mouth haemorrhage [Unknown]
  - Oral mucosa erosion [Not Recovered/Not Resolved]
  - Fatigue [Unknown]
  - White blood cell count decreased [Unknown]
  - Photosensitivity reaction [Unknown]
  - Urticaria [Recovering/Resolving]
  - Pruritus [Unknown]
  - Rash [Recovered/Resolved]
  - Inappropriate schedule of product administration [Unknown]

NARRATIVE: CASE EVENT DATE: 20210911
